FAERS Safety Report 13228801 (Version 1)
Quarter: 2017Q1

REPORT INFORMATION
  Report Type: Report from Study
  Country: US (occurrence: US)
  Receive Date: 20170213
  Receipt Date: 20170213
  Transmission Date: 20170428
  Serious: Yes (Other)
  Sender: FDA-Public Use
  Company Number: US-MYLANLABS-2017M1008536

PATIENT

DRUGS (1)
  1. CLOZAPINE. [Suspect]
     Active Substance: CLOZAPINE
     Indication: PRODUCT USED FOR UNKNOWN INDICATION
     Dosage: UNK

REACTIONS (11)
  - Pruritus [Unknown]
  - Heart rate irregular [Unknown]
  - Toxicity to various agents [Unknown]
  - Hyperhidrosis [Unknown]
  - Neuroleptic malignant syndrome [Unknown]
  - White blood cell count increased [Unknown]
  - Speech disorder [Unknown]
  - Dental caries [Unknown]
  - Swelling [Unknown]
  - Globulin abnormal [Unknown]
  - Hypersomnia [Unknown]
